FAERS Safety Report 4780367-5 (Version None)
Quarter: 2005Q3

REPORT INFORMATION
  Report Type: 
  Country: None (occurrence: None)
  Receive Date: 20050926
  Receipt Date: 20050913
  Transmission Date: 20060218
  Serious: Yes (Hospitalization, Other)
  Sender: FDA-Public Use
  Company Number: 2005130197

PATIENT
  Age: 61 Year
  Sex: Male

DRUGS (5)
  1. BEXTRA [Suspect]
     Indication: MYALGIA
     Dosage: 20 MG (10 MG, 2 IN 1 D)
     Dates: start: 20030106
  2. LORABID [Suspect]
     Indication: CYST
  3. ZOCOR [Concomitant]
  4. COZAAR [Concomitant]
  5. FLONASE [Concomitant]

REACTIONS (20)
  - ANAPHYLACTIC SHOCK [None]
  - AORTIC DILATATION [None]
  - AORTIC VALVE INCOMPETENCE [None]
  - ATRIOVENTRICULAR BLOCK COMPLETE [None]
  - CARDIAC FUNCTION DISTURBANCE POSTOPERATIVE [None]
  - CARDIAC TAMPONADE [None]
  - CHEST DISCOMFORT [None]
  - DEEP VEIN THROMBOSIS [None]
  - DRUG HYPERSENSITIVITY [None]
  - DYSPNOEA [None]
  - DYSPNOEA EXERTIONAL [None]
  - HYPOTENSION [None]
  - OBSTRUCTIVE AIRWAYS DISORDER [None]
  - PALPITATIONS [None]
  - PERICARDIAL EFFUSION [None]
  - RASH GENERALISED [None]
  - RASH MACULO-PAPULAR [None]
  - STEVENS-JOHNSON SYNDROME [None]
  - THROAT TIGHTNESS [None]
  - VENTRICULAR TACHYCARDIA [None]
